FAERS Safety Report 10495887 (Version 1)
Quarter: 2014Q4

REPORT INFORMATION
  Report Type: Spontaneous
  Country: NL (occurrence: NL)
  Receive Date: 20141003
  Receipt Date: 20141003
  Transmission Date: 20150528
  Serious: Yes (Life-Threatening, Hospitalization)
  Sender: FDA-Public Use
  Company Number: NL-PFIZER INC-2014271040

PATIENT
  Age: 54 Year
  Sex: Female
  Weight: 80 kg

DRUGS (1)
  1. STEDIRIL-30 [Suspect]
     Active Substance: ETHINYL ESTRADIOL\LEVONORGESTREL
     Dosage: 1 DF, 1X/DAY
     Dates: start: 20100101, end: 20140824

REACTIONS (3)
  - Hemiparesis [Recovering/Resolving]
  - Cerebral venous thrombosis [Recovering/Resolving]
  - Meningitis aseptic [Unknown]

NARRATIVE: CASE EVENT DATE: 20140824
